FAERS Safety Report 8285807-5 (Version None)
Quarter: 2012Q2

REPORT INFORMATION
  Report Type: 
  Country: None (occurrence: None)
  Receive Date: 20120413
  Receipt Date: 20120404
  Transmission Date: 20120825
  Serious: Yes (Hospitalization)
  Sender: FDA-Public Use
  Company Number: US-ELI_LILLY_AND_COMPANY-US201008007671

PATIENT
  Sex: Male
  Weight: 61.2 kg

DRUGS (12)
  1. FORTEO [Suspect]
     Dosage: 20 UG, DAILY (1/D)
     Route: 058
  2. LOVAZA [Concomitant]
  3. FORTEO [Suspect]
     Dosage: 20 UG, DAILY (1/D)
     Route: 058
  4. VITAMIN TAB [Concomitant]
  5. FLORASTOR [Concomitant]
     Dosage: UNK, BID
  6. CALCIUM CARBONATE [Concomitant]
  7. VITAMIN D [Concomitant]
  8. LIDODERM [Concomitant]
  9. MERCAPTOPURINE [Concomitant]
     Indication: CROHN'S DISEASE
  10. FORTEO [Suspect]
     Indication: OSTEOPOROSIS
     Dosage: 20 UG, DAILY (1/D)
     Route: 058
     Dates: start: 20100501
  11. KONSYL [Concomitant]
  12. FORTEO [Suspect]
     Dosage: 20 UG, QD
     Route: 058
     Dates: start: 20120101

REACTIONS (10)
  - ANORECTAL DISCOMFORT [None]
  - FATIGUE [None]
  - HYPERHIDROSIS [None]
  - PAIN [None]
  - NAUSEA [None]
  - LARGE INTESTINE PERFORATION [None]
  - MALAISE [None]
  - DIZZINESS [None]
  - INJECTION SITE PAIN [None]
  - SINUS DISORDER [None]
